FAERS Safety Report 9624278 (Version 2)
Quarter: 2013Q4

REPORT INFORMATION
  Report Type: Report from Study
  Country: US (occurrence: US)
  Receive Date: 20131015
  Receipt Date: 20131028
  Transmission Date: 20140711
  Serious: Yes (Other)
  Sender: FDA-Public Use
  Company Number: US-BAYER-2013-122371

PATIENT
  Sex: Male

DRUGS (1)
  1. XOFIGO [Suspect]
     Dosage: 1 DOSE
     Route: 042
     Dates: start: 201309

REACTIONS (3)
  - Haemoglobin decreased [None]
  - Platelet count decreased [None]
  - Neutrophil count decreased [None]
